FAERS Safety Report 26188167 (Version 1)
Quarter: 2025Q4

REPORT INFORMATION
  Report Type: Spontaneous
  Country: US (occurrence: US)
  Receive Date: 20251222
  Receipt Date: 20251222
  Transmission Date: 20260118
  Serious: Yes (Other)
  Sender: PFIZER
  Company Number: US-PFIZER INC-PV202500147677

PATIENT
  Age: 67 Year
  Sex: Male

DRUGS (3)
  1. RIFABUTIN [Interacting]
     Active Substance: RIFABUTIN
     Dosage: UNK
  2. RIFAMPIN [Interacting]
     Active Substance: RIFAMPIN
     Dosage: UNK
  3. AMIKACIN [Interacting]
     Active Substance: AMIKACIN
     Dosage: UNK

REACTIONS (3)
  - Drug interaction [Unknown]
  - Drug resistance [Unknown]
  - Nephropathy toxic [Unknown]
